FAERS Safety Report 6429586-2 (Version None)
Quarter: 2009Q4

REPORT INFORMATION
  Report Type: 
  Country: None (occurrence: None)
  Receive Date: 20091103
  Receipt Date: 20091022
  Transmission Date: 20100525
  Serious: Yes (Other)
  Sender: FDA-Public Use
  Company Number: 2009AL006770

PATIENT
  Age: 51 Year
  Sex: Female

DRUGS (1)
  1. PHENOBARBITAL TAB [Suspect]
     Dosage: 150 MG; QD

REACTIONS (7)
  - ANXIETY [None]
  - AURA [None]
  - COMPLEX PARTIAL SEIZURES [None]
  - DRUG WITHDRAWAL CONVULSIONS [None]
  - INSOMNIA [None]
  - RASH [None]
  - STRESS [None]
